FAERS Safety Report 11221776 (Version 1)
Quarter: 2015Q2

REPORT INFORMATION
  Report Type: Report from Study
  Country: US (occurrence: US)
  Receive Date: 20150626
  Receipt Date: 20150626
  Transmission Date: 20150821
  Serious: Yes (Other)
  Sender: FDA-Public Use
  Company Number: US-ASTRAZENECA-2015SE43255

PATIENT
  Sex: Male

DRUGS (1)
  1. BYDUREON [Suspect]
     Active Substance: EXENATIDE
     Indication: TYPE 2 DIABETES MELLITUS
     Route: 058
     Dates: start: 20150114, end: 20150420

REACTIONS (3)
  - Vomiting [Unknown]
  - Nausea [Unknown]
  - Diabetic gastroparesis [Unknown]

NARRATIVE: CASE EVENT DATE: 2015
